FAERS Safety Report 6902494-6 (Version None)
Quarter: 2010Q3

REPORT INFORMATION
  Report Type: 
  Country: None (occurrence: None)
  Receive Date: 20100802
  Receipt Date: 20100802
  Transmission Date: 20110219
  Serious: No
  Sender: FDA-Public Use
  Company Number: None

PATIENT
  Age: 5 Year
  Sex: Female
  Weight: 21.7727 kg

DRUGS (1)
  1. NIX [Suspect]
     Indication: LICE INFESTATION
     Dosage: 2-4 OUNCES ONCE TOP
     Route: 061
     Dates: start: 20100727, end: 20100727

REACTIONS (1)
  - DRUG INEFFECTIVE [None]
